FAERS Safety Report 13304573 (Version 1)
Quarter: 2017Q1

REPORT INFORMATION
  Report Type: Spontaneous
  Country: US (occurrence: US)
  Receive Date: 20170307
  Receipt Date: 20170307
  Transmission Date: 20170428
  Serious: No
  Sender: FDA-Public Use
  Company Number: None

PATIENT
  Age: 94 Year
  Sex: Male
  Weight: 74.1 kg

DRUGS (1)
  1. METFORMIN [Suspect]
     Active Substance: METFORMIN HYDROCHLORIDE
     Indication: ACIDOSIS
     Dosage: MG PO
     Route: 048
     Dates: start: 20160720, end: 20160806

REACTIONS (2)
  - Lactic acidosis [None]
  - Therapy cessation [None]

NARRATIVE: CASE EVENT DATE: 20160804
